FAERS Safety Report 4509465-8 (Version None)
Quarter: 2004Q4

REPORT INFORMATION
  Report Type: 
  Country: None (occurrence: None)
  Receive Date: 20041119
  Receipt Date: 20041110
  Transmission Date: 20050328
  Serious: Yes (Hospitalization)
  Sender: FDA-Public Use
  Company Number: STA-AE-04-MTX-558

PATIENT
  Age: 76 Year
  Sex: Male

DRUGS (1)
  1. METHOTREXATE [Suspect]
     Indication: RHEUMATOID ARTHRITIS
     Dosage: 7.5MG 1 X PER 1 WK, ORAL
     Route: 048
     Dates: start: 20020501

REACTIONS (1)
  - ARTHRITIS BACTERIAL [None]
